FAERS Safety Report 7813162-0 (Version None)
Quarter: 2011Q4

REPORT INFORMATION
  Report Type: 
  Country: None (occurrence: None)
  Receive Date: 20111013
  Receipt Date: 20111003
  Transmission Date: 20120403
  Serious: Yes (Other)
  Sender: FDA-Public Use
  Company Number: US-ABBOTT-11P-163-0860472-00

PATIENT
  Age: 33 Year
  Sex: Female

DRUGS (15)
  1. PLAQUENIL [Concomitant]
     Indication: PRODUCT USED FOR UNKNOWN INDICATION
     Route: 048
  2. ACTOS [Concomitant]
     Indication: TYPE 2 DIABETES MELLITUS
     Route: 048
  3. ABILIFY [Concomitant]
     Indication: AFFECTIVE DISORDER
     Route: 048
  4. HUMIRA [Suspect]
     Route: 058
     Dates: start: 20100601
  5. KLONOPIN [Concomitant]
     Indication: CONVULSION
     Route: 048
  6. VYVANSE [Concomitant]
     Indication: ATTENTION DEFICIT/HYPERACTIVITY DISORDER
     Route: 048
  7. ANTICOAGULANT [Concomitant]
     Indication: PRODUCT USED FOR UNKNOWN INDICATION
  8. CALCIUM CARBONATE [Concomitant]
     Indication: PRODUCT USED FOR UNKNOWN INDICATION
  9. HUMIRA [Suspect]
     Indication: PSORIATIC ARTHROPATHY
     Dates: start: 20100101
  10. LEXAPRO [Concomitant]
     Indication: AFFECTIVE DISORDER
     Dosage: EVERY MORNING
     Route: 048
  11. XANAX [Concomitant]
     Indication: AFFECTIVE DISORDER
     Dosage: AS NEEDED
     Route: 048
  12. KEPPRA [Concomitant]
     Indication: CONVULSION
     Route: 048
  13. METHOTREXATE [Concomitant]
     Indication: PRODUCT USED FOR UNKNOWN INDICATION
  14. VITAMIN B-12 [Concomitant]
     Indication: VITAMIN SUPPLEMENTATION
     Route: 048
  15. SYMBICORT [Concomitant]
     Indication: LANGERHANS' CELL HISTIOCYTOSIS

REACTIONS (11)
  - ARTHRALGIA [None]
  - WEIGHT LOSS POOR [None]
  - SWELLING [None]
  - ASTHMA [None]
  - PSORIATIC ARTHROPATHY [None]
  - GASTRIC BYPASS [None]
  - FUNGAL INFECTION [None]
  - VOMITING [None]
  - OSTEOARTHRITIS [None]
  - ILL-DEFINED DISORDER [None]
  - SKIN IRRITATION [None]
